FAERS Safety Report 9531282 (Version 3)
Quarter: 2013Q4

REPORT INFORMATION
  Report Type: Spontaneous
  Country: JP (occurrence: JP)
  Receive Date: 20130918
  Receipt Date: 20131217
  Transmission Date: 20140711
  Serious: Yes (Disabling)
  Sender: FDA-Public Use
  Company Number: JP-ROCHE-1257371

PATIENT
  Age: 72 Year
  Sex: Female
  Weight: 55 kg

DRUGS (9)
  1. ACTEMRA [Suspect]
     Indication: RHEUMATOID ARTHRITIS
     Route: 041
     Dates: start: 20130325, end: 20130722
  2. RHEUMATREX [Suspect]
     Indication: RHEUMATOID ARTHRITIS
     Route: 048
     Dates: start: 20081108, end: 20081202
  3. RHEUMATREX [Suspect]
     Indication: RHEUMATOID ARTHRITIS
     Route: 048
     Dates: start: 20081203, end: 20090705
  4. RHEUMATREX [Suspect]
     Indication: RHEUMATOID ARTHRITIS
     Route: 048
     Dates: start: 20090706, end: 20130722
  5. TAKEPRON [Concomitant]
     Indication: PROPHYLAXIS
     Route: 048
     Dates: start: 20081106
  6. HYPEN [Concomitant]
     Indication: RHEUMATOID ARTHRITIS
     Dosage: TAKEN AS NEEDED
     Route: 048
     Dates: start: 20081106
  7. MOHRUS TAPE [Concomitant]
     Indication: RHEUMATOID ARTHRITIS
     Dosage: TAKEN AS NEEDED
     Route: 061
     Dates: start: 20081106
  8. PREDONINE [Concomitant]
     Indication: RHEUMATOID ARTHRITIS
     Route: 048
     Dates: start: 20090202
  9. LEUCOVORIN [Concomitant]
     Indication: PROPHYLAXIS
     Route: 048
     Dates: start: 20090831, end: 20130722

REACTIONS (3)
  - Mouth ulceration [Recovered/Resolved with Sequelae]
  - Epstein-Barr virus infection [Unknown]
  - Lymphoproliferative disorder [Recovered/Resolved with Sequelae]
